FAERS Safety Report 4479276-0 (Version None)
Quarter: 2004Q4

REPORT INFORMATION
  Report Type: 
  Country: None (occurrence: None)
  Receive Date: 20041015
  Receipt Date: 20040929
  Transmission Date: 20050328
  Serious: Yes (Disabling)
  Sender: FDA-Public Use
  Company Number: DSA_60447_2004

PATIENT
  Age: 52 Year
  Sex: Female

DRUGS (3)
  1. MYSOLINE [Suspect]
     Dosage: 250 MG QDAY PO
     Route: 048
     Dates: start: 20040501, end: 20040801
  2. MYSOLINE [Suspect]
     Dosage: 250 MG QID PO
     Route: 048
     Dates: end: 20040201
  3. PHENOBARBITONE [Concomitant]

REACTIONS (2)
  - DRUG WITHDRAWAL SYNDROME [None]
  - GRIP STRENGTH DECREASED [None]
